FAERS Safety Report 5833232-6 (Version None)
Quarter: 2008Q3

REPORT INFORMATION
  Report Type: 
  Country: None (occurrence: None)
  Receive Date: 20080801
  Receipt Date: 20080717
  Transmission Date: 20090109
  Serious: Yes (Death, Hospitalization)
  Sender: FDA-Public Use
  Company Number: 15123

PATIENT
  Age: 68 Year
  Sex: Male
  Weight: 113.3993 kg

DRUGS (2)
  1. MORPHINE SULFATE [Suspect]
     Indication: PAIN
     Dosage: 240 MG BID ORALLY
     Route: 048
     Dates: start: 20070301, end: 20080301
  2. OXYGEN [Concomitant]

REACTIONS (4)
  - AGITATION [None]
  - GENERAL PHYSICAL HEALTH DETERIORATION [None]
  - PHARMACEUTICAL PRODUCT COMPLAINT [None]
  - PNEUMONIA ASPIRATION [None]
